FAERS Safety Report 7251358-X (Version None)
Quarter: 2011Q1

REPORT INFORMATION
  Report Type: 
  Country: None (occurrence: None)
  Receive Date: 20110128
  Receipt Date: 20110123
  Transmission Date: 20110831
  Serious: Yes (Other)
  Sender: FDA-Public Use
  Company Number: US-JNJCH-2011002062

PATIENT
  Age: 24 Year
  Sex: Female
  Weight: 30.8 kg

DRUGS (1)
  1. EXTRA STRENGTH ROLAIDS SOFTCHEWS WILD CHERRY [Suspect]
     Indication: DYSPEPSIA
     Dosage: TEXT:ONE TABLET FIVE TO SIX TIMES A DAY
     Route: 048

REACTIONS (6)
  - PRODUCT QUALITY ISSUE [None]
  - DRUG EXPOSURE DURING PREGNANCY [None]
  - BLOOD URINE PRESENT [None]
  - VOMITING [None]
  - DYSGEUSIA [None]
  - MALAISE [None]
